FAERS Safety Report 4803546-7 (Version None)
Quarter: 2005Q4

REPORT INFORMATION
  Report Type: 
  Country: None (occurrence: None)
  Receive Date: 20051013
  Receipt Date: 20050919
  Transmission Date: 20060501
  Serious: Yes (Death)
  Sender: FDA-Public Use
  Company Number: IMP_0891_2005

PATIENT
  Age: 24 Month
  Sex: Male

DRUGS (1)
  1. OXYCODONE [Suspect]

REACTIONS (8)
  - ACCIDENTAL DRUG INTAKE BY CHILD [None]
  - ASPIRATION [None]
  - CARDIAC ARREST [None]
  - CYANOSIS [None]
  - LOSS OF CONSCIOUSNESS [None]
  - PULSE ABSENT [None]
  - SKIN WARM [None]
  - VENTRICULAR FIBRILLATION [None]
